FAERS Safety Report 24922363 (Version 1)
Quarter: 2025Q1

REPORT INFORMATION
  Report Type: Spontaneous
  Country: US (occurrence: None)
  Receive Date: 20250203
  Receipt Date: 20250203
  Transmission Date: 20250409
  Serious: No
  Sender: FDA-CTU
  Company Number: None

PATIENT
  Age: 35 Year
  Sex: Female

DRUGS (1)
  1. ZURZUVAE [Suspect]
     Active Substance: ZURANOLONE
     Route: 048

REACTIONS (5)
  - Muscle twitching [None]
  - Fear [None]
  - Hypersomnia [None]
  - Abnormal dreams [None]
  - Therapy cessation [None]
